FAERS Safety Report 6760987-9 (Version None)
Quarter: 2010Q2

REPORT INFORMATION
  Report Type: 
  Country: None (occurrence: None)
  Receive Date: 20100608
  Receipt Date: 20100608
  Transmission Date: 20101027
  Serious: Yes (Other)
  Sender: FDA-Public Use
  Company Number: A0853798A

PATIENT
  Age: 54 Year
  Sex: Female

DRUGS (9)
  1. FLUTICASONE PROPIONATE [Suspect]
     Indication: SINUS DISORDER
     Dosage: 2SPR TWICE PER DAY
     Route: 045
     Dates: start: 20100301
  2. CELEXA [Concomitant]
  3. UNKNOWN MEDICATION [Concomitant]
     Indication: WEIGHT CONTROL
  4. VITAMINS [Concomitant]
  5. NEURONTIN [Concomitant]
  6. IBUPROFEN [Concomitant]
  7. MECOSTOP [Concomitant]
  8. SIMVASTATIN [Concomitant]
  9. LISINOPRIL [Concomitant]

REACTIONS (8)
  - CHOKING [None]
  - COUGH [None]
  - DRUG INEFFECTIVE [None]
  - MIDDLE INSOMNIA [None]
  - NASAL CONGESTION [None]
  - PRODUCT QUALITY ISSUE [None]
  - RHINORRHOEA [None]
  - SINUS DISORDER [None]
